FAERS Safety Report 5469798-8 (Version None)
Quarter: 2007Q3

REPORT INFORMATION
  Report Type: 
  Country: None (occurrence: None)
  Receive Date: 20070927
  Receipt Date: 20070604
  Transmission Date: 20080115
  Serious: No
  Sender: FDA-Public Use
  Company Number: US-AMGEN-KDL227608

PATIENT
  Sex: Male

DRUGS (6)
  1. NEUPOGEN [Suspect]
     Indication: CHEMOTHERAPY
     Dates: start: 20070501
  2. ZOFRAN [Concomitant]
  3. PACLITAXEL [Concomitant]
  4. KEPPRA [Concomitant]
  5. COMPAZINE [Concomitant]
  6. FENTANYL [Concomitant]

REACTIONS (6)
  - CHEST PAIN [None]
  - CYANOSIS [None]
  - DYSPNOEA [None]
  - EYE DISORDER [None]
  - TREMOR [None]
  - VISION BLURRED [None]
